FAERS Safety Report 12644394 (Version 1)
Quarter: 2016Q3

REPORT INFORMATION
  Report Type: Spontaneous
  Country: US (occurrence: US)
  Receive Date: 20160811
  Receipt Date: 20160811
  Transmission Date: 20161109
  Serious: Yes (Hospitalization, Other)
  Sender: FDA-Public Use
  Company Number: US-DSJP-DSU-2016-118012

PATIENT

DRUGS (2)
  1. BENICAR [Suspect]
     Active Substance: OLMESARTAN MEDOXOMIL
     Indication: PRODUCT USED FOR UNKNOWN INDICATION
     Dosage: UNK
     Dates: start: 2009
  2. BENICAR HCT [Suspect]
     Active Substance: HYDROCHLOROTHIAZIDE\OLMESARTAN MEDOXOMIL
     Indication: HYPERTENSION
     Dosage: 20/12.5MG, UNK
     Dates: start: 2007, end: 2014

REACTIONS (4)
  - Malabsorption [Unknown]
  - Gastrointestinal haemorrhage [Unknown]
  - Acute kidney injury [Unknown]
  - Diverticulum intestinal [Unknown]

NARRATIVE: CASE EVENT DATE: 2014
